FAERS Safety Report 7000959-2 (Version None)
Quarter: 2010Q3

REPORT INFORMATION
  Report Type: 
  Country: None (occurrence: None)
  Receive Date: 20100920
  Receipt Date: 20090717
  Transmission Date: 20110219
  Serious: Yes (Other)
  Sender: FDA-Public Use
  Company Number: US-ASTRAZENECA-2007UW10985

PATIENT
  Age: 12265 Day
  Sex: Male
  Weight: 108.9 kg

DRUGS (17)
  1. SEROQUEL [Suspect]
     Indication: SLEEP DISORDER
     Route: 048
     Dates: start: 19980501, end: 19990501
  2. SEROQUEL [Suspect]
     Indication: BIPOLAR DISORDER
     Route: 048
     Dates: start: 19980501, end: 19990501
  3. SEROQUEL [Suspect]
     Indication: DEPRESSION
     Route: 048
     Dates: start: 19980501, end: 19990501
  4. SEROQUEL [Suspect]
     Route: 048
     Dates: start: 20010501, end: 20060602
  5. SEROQUEL [Suspect]
     Route: 048
     Dates: start: 20010501, end: 20060602
  6. SEROQUEL [Suspect]
     Route: 048
     Dates: start: 20010501, end: 20060602
  7. SEROQUEL [Suspect]
     Dosage: UPTO 1000 MG
     Route: 048
     Dates: start: 19980501, end: 20060601
  8. SEROQUEL [Suspect]
     Dosage: UPTO 1000 MG
     Route: 048
     Dates: start: 19980501, end: 20060601
  9. SEROQUEL [Suspect]
     Dosage: UPTO 1000 MG
     Route: 048
     Dates: start: 19980501, end: 20060601
  10. SEROQUEL [Suspect]
     Route: 048
     Dates: start: 20050826, end: 20051121
  11. SEROQUEL [Suspect]
     Route: 048
     Dates: start: 20050826, end: 20051121
  12. SEROQUEL [Suspect]
     Route: 048
     Dates: start: 20050826, end: 20051121
  13. ZYPREXA [Concomitant]
     Indication: BIPOLAR DISORDER
     Dates: start: 20080101
  14. ZYPREXA [Concomitant]
     Indication: DEPRESSION
     Dates: start: 20080101
  15. ZOLOFT [Concomitant]
     Dates: start: 20050826, end: 20051121
  16. TEGRETOL [Concomitant]
  17. TRAMADOL HYDROCHLORIDE [Concomitant]
     Dosage: 50 MG 2 TID
     Route: 048
     Dates: start: 20050826, end: 20051119

REACTIONS (3)
  - PANCREATITIS ACUTE [None]
  - PANCREATITIS CHRONIC [None]
  - TYPE 2 DIABETES MELLITUS [None]
